FAERS Safety Report 15258305 (Version 1)
Quarter: 2018Q4

REPORT INFORMATION
  Report Type: Spontaneous
  Country: IN (occurrence: IN)
  Receive Date: 20180809
  Receipt Date: 20180809
  Transmission Date: 20190204
  Serious: No
  Sender: FDA-Public Use
  Company Number: IN-LUPIN LIMITED-2018-02582

PATIENT
  Age: 27 Year
  Sex: Male

DRUGS (4)
  1. PYZINA TAB UNCOATED 1 G [Suspect]
     Active Substance: PYRAZINAMIDE
     Indication: TUBERCULOSIS
     Dosage: 1 DF, QD
     Route: 048
  2. COMBUTOL TAB UNCOATED 600 MG [Suspect]
     Active Substance: ETHAMBUTOL HYDROCHLORIDE
     Indication: TUBERCULOSIS
     Dosage: 1 DF, BID
     Route: 048
     Dates: start: 20180104
  3. PYZINA TAB UNCOATED 500 MG [Suspect]
     Active Substance: PYRAZINAMIDE
     Indication: TUBERCULOSIS
     Dosage: 1 DF, QD
     Route: 048
  4. R-CINEX TABS 600 MG/300 MG [Suspect]
     Active Substance: ISONIAZID\RIFAMPIN
     Indication: TUBERCULOSIS
     Dosage: 1 DF, QD (ON EMPTY STOMACH)
     Route: 048
     Dates: start: 20180316

REACTIONS (2)
  - Tremor [Recovered/Resolved]
  - Chromaturia [Recovered/Resolved]

NARRATIVE: CASE EVENT DATE: 20180316
